FAERS Safety Report 5807958-4 (Version None)
Quarter: 2008Q3

REPORT INFORMATION
  Report Type: 
  Country: None (occurrence: None)
  Receive Date: 20080711
  Receipt Date: 20080617
  Transmission Date: 20090109
  Serious: Yes (Hospitalization, Other)
  Sender: FDA-Public Use
  Company Number: AU-PFIZER INC-2008041210

PATIENT
  Age: 25 Year
  Sex: Female

DRUGS (2)
  1. DEPO-NISOLONE [Suspect]
  2. DEPO-PROVERA SUSPENSION/INJ [Suspect]

REACTIONS (5)
  - CONTUSION [None]
  - DRUG ADMINISTRATION ERROR [None]
  - FATIGUE [None]
  - SKIN ULCER [None]
  - TACHYCARDIA [None]
